FAERS Safety Report 12411351 (Version 1)
Quarter: 2016Q2

REPORT INFORMATION
  Report Type: Spontaneous
  Country: US (occurrence: None)
  Receive Date: 20160526
  Receipt Date: 20160526
  Transmission Date: 20160815
  Serious: Yes (Life-Threatening)
  Sender: FDA-Public Use
  Company Number: None

PATIENT
  Age: 62 Year
  Sex: Female

DRUGS (8)
  1. ASPIRIN. [Concomitant]
     Active Substance: ASPIRIN
  2. FUROSEMIDE (40MG) [Suspect]
     Active Substance: FUROSEMIDE
     Indication: CARDIAC DISORDER
     Dosage: DURING DAY BY MOUTH
     Route: 048
     Dates: end: 20160507
  3. SPIRONOLACTONE (50MG) [Suspect]
     Active Substance: SPIRONOLACTONE
  4. FUROSEMIDE (40MG) [Suspect]
     Active Substance: FUROSEMIDE
     Indication: WEIGHT DECREASED
     Dosage: DURING DAY BY MOUTH
     Route: 048
     Dates: end: 20160507
  5. FUROSEMIDE (40MG) [Suspect]
     Active Substance: FUROSEMIDE
     Indication: HYPERTENSION
     Dosage: DURING DAY BY MOUTH
     Route: 048
     Dates: end: 20160507
  6. POTASSIUM [Concomitant]
     Active Substance: POTASSIUM
  7. SIMVASTATIN. [Concomitant]
     Active Substance: SIMVASTATIN
  8. RESPERDONE [Concomitant]

REACTIONS (5)
  - Gait disturbance [None]
  - Vomiting [None]
  - Nausea [None]
  - Dyspnoea [None]
  - Muscular weakness [None]
